FAERS Safety Report 11867404 (Version 1)
Quarter: 2015Q4

REPORT INFORMATION
  Report Type: Report from Study
  Country: US (occurrence: US)
  Receive Date: 20151224
  Receipt Date: 20151224
  Transmission Date: 20160305
  Serious: No
  Sender: FDA-Public Use
  Company Number: PHEH2015US026690

PATIENT
  Age: 56 Year
  Sex: Male

DRUGS (1)
  1. TASIGNA [Suspect]
     Active Substance: NILOTINIB
     Indication: CHRONIC MYELOID LEUKAEMIA
     Dosage: UNK
     Route: 065

REACTIONS (23)
  - Hair colour changes [Unknown]
  - Nausea [Unknown]
  - Dizziness [Unknown]
  - Arthralgia [Unknown]
  - Skin discolouration [Unknown]
  - Sinusitis [Unknown]
  - Muscle spasms [Unknown]
  - Constipation [Unknown]
  - Pain in extremity [Unknown]
  - Myalgia [Unknown]
  - Insomnia [Unknown]
  - Fatigue [Unknown]
  - Dry skin [Unknown]
  - Dyspepsia [Unknown]
  - Headache [Unknown]
  - Abdominal pain [Unknown]
  - Brachycephaly [Unknown]
  - Diarrhoea [Unknown]
  - Pyrexia [Unknown]
  - Gastrooesophageal reflux disease [Unknown]
  - Skin injury [Unknown]
  - Sinus congestion [Unknown]
  - Paraesthesia [Unknown]
